FAERS Safety Report 7653103-2 (Version None)
Quarter: 2011Q3

REPORT INFORMATION
  Report Type: 
  Country: None (occurrence: None)
  Receive Date: 20110803
  Receipt Date: 20110729
  Transmission Date: 20111222
  Serious: Yes (Hospitalization, Other)
  Sender: FDA-Public Use
  Company Number: JP-PFIZER INC-2011175104

PATIENT

DRUGS (2)
  1. AMOXAPINE [Concomitant]
     Dosage: UNK
  2. LYRICA [Suspect]
     Dosage: UNK
     Route: 048

REACTIONS (4)
  - HEPATIC FUNCTION ABNORMAL [None]
  - DRUG ERUPTION [None]
  - C-REACTIVE PROTEIN INCREASED [None]
  - PYREXIA [None]
